FAERS Safety Report 7624617-6 (Version None)
Quarter: 2011Q3

REPORT INFORMATION
  Report Type: 
  Country: None (occurrence: None)
  Receive Date: 20110720
  Receipt Date: 20110718
  Transmission Date: 20111222
  Serious: Yes (Hospitalization, Other)
  Sender: FDA-Public Use
  Company Number: US-PFIZER INC-2011162636

PATIENT
  Sex: Female
  Weight: 63.492 kg

DRUGS (10)
  1. COREG [Concomitant]
     Dosage: UNK
  2. IMDUR [Concomitant]
     Dosage: UNK
  3. LASIX [Concomitant]
     Indication: CARDIAC FAILURE CONGESTIVE
     Dosage: UNK
  4. TEGRETOL [Concomitant]
     Dosage: UNK
  5. SYMBICORT [Concomitant]
     Dosage: UNK
  6. PLAVIX [Concomitant]
     Dosage: UNK
  7. PRAVACHOL [Concomitant]
     Dosage: UNK
  8. PRINIVIL [Concomitant]
     Dosage: UNK
  9. SPIRIVA [Concomitant]
     Indication: CHRONIC OBSTRUCTIVE PULMONARY DISEASE
     Dosage: UNK
  10. LYRICA [Suspect]
     Indication: NEURALGIA
     Dosage: UNK
     Route: 048
     Dates: start: 20110101

REACTIONS (2)
  - DYSPNOEA [None]
  - RESPIRATORY FAILURE [None]
